FAERS Safety Report 8145277-4 (Version None)
Quarter: 2012Q1

REPORT INFORMATION
  Report Type: 
  Country: None (occurrence: None)
  Receive Date: 20120217
  Receipt Date: 20120209
  Transmission Date: 20120608
  Serious: Yes (Other)
  Sender: FDA-Public Use
  Company Number: PHHY2012US011231

PATIENT
  Age: 43 Year
  Sex: Female

DRUGS (7)
  1. DEXAMETHASONE [Concomitant]
     Dosage: 10 MG, UNK
     Route: 042
  2. DOCETAXEL [Suspect]
     Indication: BREAST CANCER
     Dosage: 175 MG/M2, UNK
  3. PALONOSETRON [Concomitant]
     Indication: BREAST CANCER
     Dosage: 0.25 MG, UNK
     Route: 042
  4. APREPITANT [Concomitant]
     Dosage: 80 MG, UNK
  5. DEXAMETHASONE [Concomitant]
     Indication: BREAST CANCER
     Dosage: 8 MG, BID
     Route: 048
  6. CYCLOPHOSPHAMIDE [Suspect]
     Indication: BREAST CANCER
     Dosage: 600 MG/M2, UNK
  7. APREPITANT [Concomitant]
     Indication: BREAST CANCER
     Dosage: 125 MG, UNK
     Route: 048

REACTIONS (5)
  - PURPURA [None]
  - URTICARIA [None]
  - SUNBURN [None]
  - RADIATION SKIN INJURY [None]
  - RASH MACULAR [None]
